FAERS Safety Report 6159032-8 (Version None)
Quarter: 2009Q2

REPORT INFORMATION
  Report Type: 
  Country: None (occurrence: None)
  Receive Date: 20090417
  Receipt Date: 20090407
  Transmission Date: 20091009
  Serious: Yes (Other)
  Sender: FDA-Public Use
  Company Number: FR-PFIZER INC-2008097008

PATIENT

DRUGS (6)
  1. MARAVIROC [Suspect]
     Indication: HIV INFECTION
     Dosage: 150 MG, 2X/DAY
     Dates: start: 20080527
  2. LAMIVUDINE [Concomitant]
     Route: 048
     Dates: start: 20000914
  3. PRAVASTATIN [Concomitant]
     Route: 048
     Dates: start: 20051106, end: 20081016
  4. RITONAVIR [Concomitant]
     Route: 048
     Dates: start: 20080527
  5. ATAZANAVIR SULFATE [Concomitant]
     Route: 048
     Dates: start: 20080527
  6. ALL OTHER THERAPEUTIC PRODUCTS [Concomitant]
     Route: 048
     Dates: start: 20081011, end: 20081018

REACTIONS (1)
  - BASAL CELL CARCINOMA [None]
